FAERS Safety Report 10177011 (Version 1)
Quarter: 2014Q2

REPORT INFORMATION
  Report Type: Report from Study
  Country: US (occurrence: US)
  Receive Date: 20140516
  Receipt Date: 20140516
  Transmission Date: 20141212
  Serious: Yes (Other)
  Sender: FDA-Public Use
  Company Number: US-MPIJNJ-2014MPI001411

PATIENT
  Age: 84 Year
  Sex: Male
  Weight: 88.89 kg

DRUGS (2)
  1. VELCADE [Suspect]
     Indication: PLASMA CELL MYELOMA
     Dosage: 1.3 MG/M2, 1/WEEK
     Route: 058
     Dates: start: 20131118, end: 20140106
  2. DEXAMETHASONE [Suspect]
     Indication: PLASMA CELL MYELOMA
     Dosage: 4 MG, 10 TABLETS WEEKLY
     Route: 048
     Dates: start: 20131114

REACTIONS (2)
  - Pulmonary oedema [Recovered/Resolved]
  - Chest pain [Recovered/Resolved]
